FAERS Safety Report 7656431-X (Version None)
Quarter: 2011Q3

REPORT INFORMATION
  Report Type: 
  Country: None (occurrence: None)
  Receive Date: 20110804
  Receipt Date: 20110718
  Transmission Date: 20111222
  Serious: Yes (Death, Life-Threatening, Hospitalization)
  Sender: FDA-Public Use
  Company Number: FR-GLAXOSMITHKLINE-B0737099A

PATIENT
  Sex: Female

DRUGS (7)
  1. SINTROM [Suspect]
     Indication: PRODUCT USED FOR UNKNOWN INDICATION
     Route: 048
     Dates: end: 20110531
  2. LASIX [Concomitant]
     Route: 065
  3. ZESTORETIC [Suspect]
     Indication: HYPERTENSION
     Dosage: 1U PER DAY
     Route: 048
     Dates: end: 20110531
  4. DIGOXIN [Suspect]
     Indication: ATRIAL FIBRILLATION
     Route: 048
     Dates: end: 20110531
  5. LEVOTHYROXINE SODIUM [Concomitant]
     Indication: HYPOTHYROIDISM
     Route: 065
  6. ALLOPURINOL [Suspect]
     Indication: HYPERURICAEMIA
     Dosage: 200MG PER DAY
     Route: 048
     Dates: end: 20110531
  7. METHOXY POLYETHYLENE GLYCOL-EPOETIN BETA [Concomitant]
     Route: 058

REACTIONS (11)
  - INTERNATIONAL NORMALISED RATIO INCREASED [None]
  - MELAENA [None]
  - OEDEMA [None]
  - CARDIAC FAILURE [None]
  - RENAL FAILURE [None]
  - CONFUSIONAL STATE [None]
  - GENERAL PHYSICAL HEALTH DETERIORATION [None]
  - ANAEMIA [None]
  - HYPOTENSION [None]
  - DISORIENTATION [None]
  - DYSPNOEA [None]
